FAERS Safety Report 18046187 (Version 1)
Quarter: 2020Q3

REPORT INFORMATION
  Report Type: Report from Study
  Country: US (occurrence: US)
  Receive Date: 20200720
  Receipt Date: 20200720
  Transmission Date: 20201103
  Serious: Yes (Hospitalization)
  Sender: FDA-Public Use
  Company Number: PHHO2018US007302

PATIENT
  Age: 58 Year
  Sex: Female

DRUGS (6)
  1. PREDNISONE. [Suspect]
     Active Substance: PREDNISONE
     Dosage: 10 MG, BID
     Route: 065
     Dates: start: 20180619
  2. IBRUTINIB [Suspect]
     Active Substance: IBRUTINIB
     Dosage: 420 MG, UNK
     Route: 048
     Dates: start: 20180619
  3. PREDNISONE. [Suspect]
     Active Substance: PREDNISONE
     Dosage: 15 MG, BID
     Route: 065
     Dates: start: 20180603
  4. IBRUTINIB [Suspect]
     Active Substance: IBRUTINIB
     Indication: CHRONIC GRAFT VERSUS HOST DISEASE
     Dosage: 280 MG, QD
     Route: 048
     Dates: start: 20180508
  5. PREDNISONE. [Suspect]
     Active Substance: PREDNISONE
     Indication: GRAFT VERSUS HOST DISEASE
     Dosage: 20 MG, BID
     Route: 065
  6. PREDNISONE. [Suspect]
     Active Substance: PREDNISONE
     Dosage: 10 MG, QAM / 5 MG, QPM
     Route: 065
     Dates: start: 20180621

REACTIONS (4)
  - Fatigue [Not Recovered/Not Resolved]
  - Atrial flutter [Recovering/Resolving]
  - Osteonecrosis [Recovered/Resolved]
  - Oral dysaesthesia [Not Recovered/Not Resolved]

NARRATIVE: CASE EVENT DATE: 20180601
